FAERS Safety Report 8306982-X (Version None)
Quarter: 2012Q2

REPORT INFORMATION
  Report Type: 
  Country: None (occurrence: None)
  Receive Date: 20120419
  Receipt Date: 20120404
  Transmission Date: 20120825
  Serious: Yes (Hospitalization, Other)
  Sender: FDA-Public Use
  Company Number: INT_00064_2012

PATIENT
  Age: 47 Year
  Sex: Male

DRUGS (1)
  1. CEFAZOLIN [Suspect]
     Indication: OPPORTUNISTIC INFECTION
     Dosage: SEE IMAGE
     Route: 042

REACTIONS (8)
  - STUPOR [None]
  - ANTIBIOTIC LEVEL ABOVE THERAPEUTIC [None]
  - NEUROTOXICITY [None]
  - PERITONEAL DIALYSIS [None]
  - MYOCLONUS [None]
  - DEPRESSED LEVEL OF CONSCIOUSNESS [None]
  - LETHARGY [None]
  - ELECTROENCEPHALOGRAM ABNORMAL [None]
